FAERS Safety Report 22642973 (Version 1)
Quarter: 2023Q2

REPORT INFORMATION
  Report Type: Spontaneous
  Country: CN (occurrence: CN)
  Receive Date: 20230627
  Receipt Date: 20230627
  Transmission Date: 20230721
  Serious: Yes (Life-Threatening, Hospitalization, Other)
  Sender: FDA-Public Use
  Company Number: CN-ALKEM LABORATORIES LIMITED-CN-ALKEM-2023-04991

PATIENT
  Age: 64 Year
  Sex: Male

DRUGS (4)
  1. MORPHINE SULFATE [Interacting]
     Active Substance: MORPHINE SULFATE
     Indication: Cancer pain
     Dosage: UNK, BID SUSTAINED-RELEASE TABLETS (30-60 MG Q12H)
     Route: 048
  2. DIAZEPAM [Suspect]
     Active Substance: DIAZEPAM
     Indication: Sedative therapy
     Dosage: UNK
     Route: 065
  3. ESTAZOLAM [Interacting]
     Active Substance: ESTAZOLAM
     Indication: Insomnia
     Dosage: 1 MILLIGRAM, PRN (INTERMITTENTLY) SAFE DOSE
     Route: 048
  4. Pemetrexed-Platinum [Concomitant]
     Indication: Mesothelioma malignant
     Dosage: UNK TOTAL OF 13 CYCLES
     Route: 065

REACTIONS (4)
  - Respiratory failure [Recovered/Resolved]
  - Drug interaction [Unknown]
  - Drug level increased [Recovering/Resolving]
  - Coma [Recovering/Resolving]
